FAERS Safety Report 7471530-3 (Version None)
Quarter: 2011Q2

REPORT INFORMATION
  Report Type: 
  Country: None (occurrence: None)
  Receive Date: 20110511
  Receipt Date: 20110426
  Transmission Date: 20111010
  Serious: Yes (Hospitalization, Other)
  Sender: FDA-Public Use
  Company Number: US-ELI_LILLY_AND_COMPANY-US201104008039

PATIENT
  Sex: Female

DRUGS (11)
  1. PROCARDIA [Concomitant]
  2. ASPIRIN [Concomitant]
     Dosage: 325 MG, QD
  3. PREMARIN [Concomitant]
  4. METOPROLOL SUCCINATE [Concomitant]
     Indication: CARDIAC DISORDER
  5. CELEXA [Concomitant]
  6. HUMIRA [Concomitant]
  7. FORTEO [Suspect]
     Indication: OSTEOPOROSIS
     Dosage: 20 UG, QD
     Dates: end: 20110405
  8. VICODIN [Concomitant]
     Dosage: UNK, PRN
  9. LYRICA [Concomitant]
  10. TRAMADOL HCL [Concomitant]
  11. METHOTREXATE SODIUM [Concomitant]

REACTIONS (15)
  - LIVER DISORDER [None]
  - LABORATORY TEST ABNORMAL [None]
  - ASTHENIA [None]
  - HEPATIC STEATOSIS [None]
  - INFLUENZA LIKE ILLNESS [None]
  - FEELING COLD [None]
  - HEPATIC ENZYME ABNORMAL [None]
  - BODY TEMPERATURE INCREASED [None]
  - URINARY TRACT INFECTION [None]
  - CHROMATURIA [None]
  - WEIGHT DECREASED [None]
  - DYSURIA [None]
  - FAECES PALE [None]
  - ATRIAL FIBRILLATION [None]
  - PAIN [None]
